FAERS Safety Report 5875013-3 (Version None)
Quarter: 2008Q3

REPORT INFORMATION
  Report Type: 
  Country: None (occurrence: None)
  Receive Date: 20080908
  Receipt Date: 20080908
  Transmission Date: 20090109
  Serious: Yes (Other)
  Sender: FDA-Public Use
  Company Number: None

PATIENT
  Age: 34 Year
  Sex: Female
  Weight: 52.1637 kg

DRUGS (2)
  1. PAXIL [Suspect]
     Indication: DEPRESSION
     Dosage: 1 TABLET AT NIGHT  1  BUCCAL
     Route: 002
  2. PAXIL [Suspect]
     Indication: STRESS
     Dosage: 1 TABLET AT NIGHT  1  BUCCAL
     Route: 002

REACTIONS (4)
  - MALAISE [None]
  - NAUSEA [None]
  - PARAESTHESIA [None]
  - VOMITING [None]
